FAERS Safety Report 21156859 (Version 1)
Quarter: 2022Q3

REPORT INFORMATION
  Report Type: Spontaneous
  Country: US (occurrence: None)
  Receive Date: 20220731
  Receipt Date: 20220731
  Transmission Date: 20221026
  Serious: Yes (Disabling)
  Sender: FDA-Public Use
  Company Number: None

PATIENT
  Age: 17 Year
  Sex: Male
  Weight: 56.25 kg

DRUGS (1)
  1. BANANA BOAT (AVOBENZONE\HOMOSALATE\OCTOCRYLENE) [Suspect]
     Active Substance: AVOBENZONE\HOMOSALATE\OCTOCRYLENE
     Indication: Prophylaxis against solar radiation
     Dosage: FREQUENCY : AS NEEDED;?
     Route: 061

REACTIONS (3)
  - Rash [None]
  - Pain [None]
  - Asthma [None]

NARRATIVE: CASE EVENT DATE: 20220729
